FAERS Safety Report 20687038 (Version 4)
Quarter: 2024Q2

REPORT INFORMATION
  Report Type: Report from Study
  Country: JP (occurrence: JP)
  Receive Date: 20220407
  Receipt Date: 20240419
  Transmission Date: 20240716
  Serious: No
  Sender: FDA-Public Use
  Company Number: JP-TAKEDA-2022TJP035781

PATIENT
  Age: 7 Year
  Sex: Female
  Weight: 17.5 kg

DRUGS (10)
  1. TEDUGLUTIDE [Suspect]
     Active Substance: TEDUGLUTIDE
     Indication: Short-bowel syndrome
     Dosage: 0.05 MILLIGRAM/KILOGRAM, QD
     Route: 058
     Dates: start: 20211216
  2. TEDUGLUTIDE [Suspect]
     Active Substance: TEDUGLUTIDE
     Indication: Short-bowel syndrome
     Dosage: 0.05 MILLIGRAM/KILOGRAM, QD
     Route: 058
     Dates: start: 20211216
  3. TEDUGLUTIDE [Suspect]
     Active Substance: TEDUGLUTIDE
     Indication: Short-bowel syndrome
     Dosage: 0.05 MILLIGRAM/KILOGRAM, QD
     Route: 058
     Dates: start: 20211216
  4. TEDUGLUTIDE [Suspect]
     Active Substance: TEDUGLUTIDE
     Indication: Short-bowel syndrome
     Dosage: 0.05 MILLIGRAM/KILOGRAM, QD
     Route: 058
     Dates: start: 20211216
  5. HERBALS [Concomitant]
     Active Substance: HERBALS
     Indication: Short-bowel syndrome
     Dosage: UNK
     Route: 065
  6. HERBAL NOS [Concomitant]
     Active Substance: HERBALS
     Indication: Short-bowel syndrome
     Dosage: UNK
     Route: 065
  7. MOSAPRIDE CITRATE [Concomitant]
     Active Substance: MOSAPRIDE CITRATE
     Indication: Short-bowel syndrome
     Dosage: UNK
     Route: 065
  8. MIYA-BM [Concomitant]
     Active Substance: CLOSTRIDIUM BUTYRICUM SPORES STRAIN M-55
     Indication: Short-bowel syndrome
     Dosage: UNK
     Route: 065
  9. URSO [Concomitant]
     Active Substance: URSODIOL
     Indication: Short-bowel syndrome
     Dosage: UNK
     Route: 065
  10. Glycyron [Concomitant]
     Indication: Short-bowel syndrome
     Dosage: UNK
     Route: 065

REACTIONS (2)
  - No adverse event [Recovered/Resolved]
  - Overdose [Recovered/Resolved]

NARRATIVE: CASE EVENT DATE: 20211216
